FAERS Safety Report 4772996-X (Version None)
Quarter: 2005Q3

REPORT INFORMATION
  Report Type: 
  Country: None (occurrence: None)
  Receive Date: 20050916
  Receipt Date: 20050908
  Transmission Date: 20060218
  Serious: Yes (Life-Threatening, Hospitalization)
  Sender: FDA-Public Use
  Company Number: 2005125283

PATIENT
  Age: 77 Year
  Sex: Female
  Weight: 80 kg

DRUGS (8)
  1. ZYVOX [Suspect]
     Indication: ENTEROCOCCAL INFECTION
     Dosage: 1200 MG INTRAVENOUS
     Route: 042
     Dates: start: 20050809, end: 20050819
  2. FUROSEMIDE [Concomitant]
  3. DOPAMINE HCL [Concomitant]
  4. AMIODARONE HCL [Concomitant]
  5. PIPERACILLIN/TAZOBACTAM (PIPERACILLIN, TAZOBACTAM) [Concomitant]
  6. VANCOMYCIN [Concomitant]
  7. CHOLESTYRAMINE [Concomitant]
  8. LOPERAMIDE HCL [Concomitant]

REACTIONS (4)
  - ECCHYMOSIS [None]
  - PLATELET COUNT DECREASED [None]
  - THROMBOCYTOPENIA [None]
  - VENTRICULAR ARRHYTHMIA [None]
